FAERS Safety Report 12432152 (Version 1)
Quarter: 2016Q2

REPORT INFORMATION
  Report Type: Spontaneous
  Country: US (occurrence: None)
  Receive Date: 20160602
  Receipt Date: 20160602
  Transmission Date: 20160815
  Serious: Yes (Disabling, Other)
  Sender: FDA-Public Use
  Company Number: None

PATIENT
  Age: 62 Year
  Sex: Female
  Weight: 56.7 kg

DRUGS (1)
  1. CIPROFLOXACIN HCL [Suspect]
     Active Substance: CIPROFLOXACIN HYDROCHLORIDE
     Indication: URINARY TRACT INFECTION
     Dosage: 20 TABLET(S) EVERY 12 HOURS
     Dates: start: 20130401, end: 20140403

REACTIONS (2)
  - Unevaluable event [None]
  - Toxicity to various agents [None]

NARRATIVE: CASE EVENT DATE: 20130401
